FAERS Safety Report 6540397-X (Version None)
Quarter: 2010Q1

REPORT INFORMATION
  Report Type: 
  Country: None (occurrence: None)
  Receive Date: 20100113
  Receipt Date: 20091130
  Transmission Date: 20100710
  Serious: Yes (Hospitalization)
  Sender: FDA-Public Use
  Company Number: DSA_42113_2009

PATIENT
  Sex: Female
  Weight: 61.3 kg

DRUGS (7)
  1. ATIVAN [Suspect]
     Indication: DRUG USE FOR UNKNOWN INDICATION
     Dosage: (1 MG QD)
  2. DOUBLE BLINDED [Suspect]
     Indication: PROPHYLAXIS
     Dosage: (DF ORAL), (DF)
     Route: 048
     Dates: start: 20091006, end: 20091030
  3. DOUBLE BLINDED [Suspect]
     Indication: PROPHYLAXIS
     Dosage: (DF ORAL), (DF)
     Route: 048
     Dates: start: 20091113
  4. WHOLE BRAIN RADIATION THERAPY 1 DF [Suspect]
     Indication: DRUG USE FOR UNKNOWN INDICATION
     Dosage: (1 DF, 5 DAYS A WEEK X 3 WEEKS)
     Dates: start: 20091006, end: 20091022
  5. DARVOCET [Suspect]
     Indication: PAIN
     Dosage: (100 MG Q4H)
  6. DECADRON [Suspect]
     Indication: DRUG USE FOR UNKNOWN INDICATION
     Dosage: (40 MG QD)
  7. PRILOSEC [Suspect]
     Indication: DRUG USE FOR UNKNOWN INDICATION
     Dosage: (20 MG BID)

REACTIONS (5)
  - ACTIVITIES OF DAILY LIVING IMPAIRED [None]
  - BLOOD UREA INCREASED [None]
  - DEHYDRATION [None]
  - FATIGUE [None]
  - WEIGHT DECREASED [None]
